FAERS Safety Report 14692069 (Version 1)
Quarter: 2018Q1

REPORT INFORMATION
  Report Type: Report from Study
  Country: None (occurrence: US)
  Receive Date: 20180329
  Receipt Date: 20180329
  Transmission Date: 20180509
  Serious: Yes (Other)
  Sender: FDA-Public Use
  Company Number: US-ABBVIE-18K-163-2296035-00

PATIENT
  Age: 51 Year
  Sex: Female
  Weight: 77.63 kg

DRUGS (4)
  1. CYMBALTA [Concomitant]
     Active Substance: DULOXETINE HYDROCHLORIDE
     Indication: DEPRESSION
  2. IMURAN [Suspect]
     Active Substance: AZATHIOPRINE
     Indication: CROHN^S DISEASE
     Route: 065
     Dates: start: 2008, end: 201802
  3. HUMIRA [Suspect]
     Active Substance: ADALIMUMAB
     Indication: CROHN^S DISEASE
     Route: 058
     Dates: start: 201703, end: 201710
  4. HUMIRA [Suspect]
     Active Substance: ADALIMUMAB
     Route: 058
     Dates: start: 20180322, end: 20180322

REACTIONS (13)
  - Scab [Recovered/Resolved]
  - Pain in extremity [Not Recovered/Not Resolved]
  - Pain in extremity [Recovered/Resolved]
  - Incision site complication [Not Recovered/Not Resolved]
  - Nodule [Recovered/Resolved]
  - Burning sensation [Recovered/Resolved]
  - Papule [Not Recovered/Not Resolved]
  - Squamous cell carcinoma of skin [Recovering/Resolving]
  - Localised infection [Recovered/Resolved]
  - Papule [Recovered/Resolved]
  - Pigmentation disorder [Not Recovered/Not Resolved]
  - Pruritus [Recovered/Resolved]
  - Peripheral swelling [Recovered/Resolved]

NARRATIVE: CASE EVENT DATE: 201708
